FAERS Safety Report 16908202 (Version 3)
Quarter: 2020Q1

REPORT INFORMATION
  Report Type: Spontaneous
  Country: US (occurrence: US)
  Receive Date: 20191011
  Receipt Date: 20200213
  Transmission Date: 20200409
  Serious: No
  Sender: FDA-Public Use
  Company Number: US-PFIZER INC-2019438084

PATIENT
  Age: 63 Year
  Sex: Female
  Weight: 83.9 kg

DRUGS (3)
  1. EUCRISA [Suspect]
     Active Substance: CRISABOROLE
     Dosage: UNK, 1X/DAY [APPLY TO AFFECTED AREA QD (ONCE DAILY)]
     Route: 061
     Dates: start: 20191205, end: 20191215
  2. EUCRISA [Suspect]
     Active Substance: CRISABOROLE
     Indication: DERMATITIS ATOPIC
     Dosage: UNK, 2X/DAY (APPLY TO AFFECTED AREA)
     Dates: end: 20191101
  3. BETAMETHASONE. [Concomitant]
     Active Substance: BETAMETHASONE
     Indication: DERMATITIS ATOPIC
     Dosage: UNK , 2X/DAY (BID (TWICE A DAY) X 2 WEEKS)
     Dates: start: 20191205

REACTIONS (3)
  - Dermatitis atopic [Unknown]
  - Drug ineffective [Unknown]
  - Burning sensation [Unknown]

NARRATIVE: CASE EVENT DATE: 201910
